FAERS Safety Report 24044400 (Version 1)
Quarter: 2024Q3

REPORT INFORMATION
  Report Type: Spontaneous
  Country: US (occurrence: US)
  Receive Date: 20240703
  Receipt Date: 20240703
  Transmission Date: 20241017
  Serious: Yes (Other)
  Sender: AUROBINDO
  Company Number: US-AUROBINDO-AUR-APL-2024-031406

PATIENT
  Age: 51 Year
  Sex: Female

DRUGS (10)
  1. EZETIMIBE [Suspect]
     Active Substance: EZETIMIBE
     Indication: Hyperlipidaemia
     Dosage: UNK
     Route: 065
     Dates: start: 2018
  2. KETOCONAZOLE [Suspect]
     Active Substance: KETOCONAZOLE
     Indication: Pituitary-dependent Cushing^s syndrome
     Dosage: UNK
     Route: 065
  3. PIOGLITAZONE [Suspect]
     Active Substance: PIOGLITAZONE
     Indication: Type 2 diabetes mellitus
     Dosage: 30 MILLIGRAM, DAILY
     Route: 065
     Dates: start: 2020
  4. EXENATIDE [Suspect]
     Active Substance: EXENATIDE
     Indication: Type 2 diabetes mellitus
     Dosage: UNK (EXTENDED RELEASE WEEKLY)
     Route: 058
     Dates: start: 2020
  5. INSULIN ASPART [Suspect]
     Active Substance: INSULIN ASPART
     Indication: Type 2 diabetes mellitus
     Dosage: 5?10 UNITS WITH MEALS
     Route: 065
     Dates: start: 2020
  6. INSULIN GLARGINE [Suspect]
     Active Substance: INSULIN GLARGINE
     Indication: Type 2 diabetes mellitus
     Dosage: 50 UNITS/DAY
     Route: 065
     Dates: start: 2020
  7. EMPAGLIFLOZIN [Concomitant]
     Active Substance: EMPAGLIFLOZIN
     Indication: Diabetes mellitus management
     Dosage: UNK
     Route: 065
  8. EMPAGLIFLOZIN [Concomitant]
     Active Substance: EMPAGLIFLOZIN
     Indication: Cardiovascular disorder
  9. METOPROLOL [Concomitant]
     Active Substance: METOPROLOL
     Indication: Product used for unknown indication
     Dosage: UNK
     Route: 065
  10. LISINOPRIL [Concomitant]
     Active Substance: LISINOPRIL
     Indication: Product used for unknown indication
     Dosage: UNK
     Route: 065

REACTIONS (2)
  - Drug ineffective [Unknown]
  - Off label use [Unknown]
